FAERS Safety Report 11857909 (Version 1)
Quarter: 2015Q4

REPORT INFORMATION
  Report Type: Spontaneous
  Country: US (occurrence: US)
  Receive Date: 20151222
  Receipt Date: 20151222
  Transmission Date: 20160305
  Serious: Yes (Other)
  Sender: FDA-Public Use
  Company Number: US-SA-2015SA209589

PATIENT
  Age: 65 Year
  Sex: Female

DRUGS (6)
  1. NOVOLOG [Suspect]
     Active Substance: INSULIN ASPART
     Route: 065
  2. SOLOSTAR [Concomitant]
     Active Substance: DEVICE
     Indication: TYPE 2 DIABETES MELLITUS
     Route: 065
     Dates: start: 2014, end: 2015
  3. TOUJEO [Concomitant]
     Active Substance: INSULIN GLARGINE
     Dosage: DOSE:85 UNIT(S)
     Route: 065
  4. LANTUS SOLOSTAR [Suspect]
     Active Substance: INSULIN GLARGINE
     Indication: TYPE 2 DIABETES MELLITUS
     Dosage: DOSE:75 UNIT(S)
     Route: 065
     Dates: end: 2015
  5. SOLOSTAR [Concomitant]
     Active Substance: DEVICE
     Route: 065
  6. LANTUS SOLOSTAR [Suspect]
     Active Substance: INSULIN GLARGINE
     Indication: TYPE 2 DIABETES MELLITUS
     Dosage: 18-20 UNITS QD
     Route: 065
     Dates: start: 2014

REACTIONS (5)
  - Renal cancer [Unknown]
  - Renal mass [Unknown]
  - Blood glucose increased [Recovering/Resolving]
  - Drug administration error [Unknown]
  - Drug ineffective [Unknown]

NARRATIVE: CASE EVENT DATE: 201509
